FAERS Safety Report 7709406-6 (Version None)
Quarter: 2011Q3

REPORT INFORMATION
  Report Type: 
  Country: None (occurrence: None)
  Receive Date: 20110819
  Receipt Date: 20110808
  Transmission Date: 20111222
  Serious: Yes (Hospitalization, Other)
  Sender: FDA-Public Use
  Company Number: DSA_47249_2011

PATIENT
  Sex: Female

DRUGS (3)
  1. BUPROPION HYDROCHLORIDE [Suspect]
     Indication: PRODUCT USED FOR UNKNOWN INDICATION
     Dosage: (3000 MG, NOT THE PRESCRIBED AMOUNT NASAL)
     Route: 045
     Dates: start: 20110721, end: 20110721
  2. TRAMADOL HYDROCHLORIDE [Suspect]
     Indication: PRODUCT USED FOR UNKNOWN INDICATION
     Dosage: (2 TABLETS (UNKNOWN STRENGTH) ORAL)
     Route: 048
     Dates: start: 20110721, end: 20110721
  3. DIAZEPAM [Suspect]
     Indication: PRODUCT USED FOR UNKNOWN INDICATION
     Dosage: (20 DROPS ORAL)
     Route: 048
     Dates: start: 20110721, end: 20110721

REACTIONS (7)
  - WOUND [None]
  - INCORRECT ROUTE OF DRUG ADMINISTRATION [None]
  - MULTIPLE DRUG OVERDOSE INTENTIONAL [None]
  - PUPILLARY REFLEX IMPAIRED [None]
  - FALL [None]
  - DRUG ABUSE [None]
  - DYSARTHRIA [None]
